FAERS Safety Report 8015774-0 (Version None)
Quarter: 2011Q4

REPORT INFORMATION
  Report Type: 
  Country: None (occurrence: None)
  Receive Date: 20111230
  Receipt Date: 20111228
  Transmission Date: 20120403
  Serious: Yes (Death)
  Sender: FDA-Public Use
  Company Number: US-ROCHE-1008343

PATIENT
  Sex: Male

DRUGS (1)
  1. ZELBORAF [Suspect]
     Indication: PRODUCT USED FOR UNKNOWN INDICATION

REACTIONS (8)
  - OEDEMA PERIPHERAL [None]
  - ALOPECIA [None]
  - PAIN IN EXTREMITY [None]
  - DISEASE PROGRESSION [None]
  - FATIGUE [None]
  - ULCER [None]
  - DECREASED APPETITE [None]
  - MASS [None]
